FAERS Safety Report 21074396 (Version 3)
Quarter: 2022Q3

REPORT INFORMATION
  Report Type: Spontaneous
  Country: CA (occurrence: CA)
  Receive Date: 20220713
  Receipt Date: 20220825
  Transmission Date: 20221027
  Serious: Yes (Other)
  Sender: FDA-Public Use
  Company Number: CA-PFIZER INC-202200933847

PATIENT
  Age: 26 Year
  Sex: Female

DRUGS (1)
  1. ABRILADA [Suspect]
     Active Substance: ADALIMUMAB-AFZB
     Indication: Hidradenitis
     Dosage: INDUCTION 160MG WEEK 0, 80MG WEEK2 THEN MAINTENANCE AT 40MG Q WEEK STARTING WEEK 4
     Route: 058
     Dates: start: 20220510, end: 20220705

REACTIONS (1)
  - Wrist fracture [Not Recovered/Not Resolved]

NARRATIVE: CASE EVENT DATE: 20220630
